FAERS Safety Report 5803140-5 (Version None)
Quarter: 2008Q3

REPORT INFORMATION
  Report Type: 
  Country: None (occurrence: None)
  Receive Date: 20080708
  Receipt Date: 20080627
  Transmission Date: 20090109
  Serious: Yes (Life-Threatening, Hospitalization)
  Sender: FDA-Public Use
  Company Number: JP-MERCK-0805USA03962

PATIENT
  Age: 83 Year
  Sex: Male

DRUGS (6)
  1. ZETIA [Suspect]
     Indication: HYPERLIPIDAEMIA
     Route: 048
     Dates: start: 20080328, end: 20080401
  2. LIPITOR [Suspect]
     Indication: HYPERLIPIDAEMIA
     Route: 048
     Dates: start: 20080206
  3. ASPIRIN [Concomitant]
     Route: 065
     Dates: start: 20071201
  4. CARVEDILOL [Concomitant]
     Route: 065
     Dates: start: 20071201
  5. DIOVAN [Suspect]
     Route: 048
     Dates: start: 20080206
  6. LANSOPRAZOLE [Concomitant]
     Route: 065
     Dates: start: 20071201

REACTIONS (2)
  - ANAEMIA [None]
  - PLATELET COUNT DECREASED [None]
